FAERS Safety Report 21085338 (Version 2)
Quarter: 2023Q1

REPORT INFORMATION
  Report Type: Spontaneous
  Country: US (occurrence: US)
  Receive Date: 20220714
  Receipt Date: 20230104
  Transmission Date: 20230417
  Serious: No
  Sender: FDA-Public Use
  Company Number: US-EVOFEM BIOSCIENCES, INC.-2021-EVO-US003414

PATIENT

DRUGS (2)
  1. PHEXXI [Suspect]
     Active Substance: CITRIC ACID MONOHYDRATE\LACTIC ACID, L-\POTASSIUM BITARTRATE
     Indication: Contraception
     Dosage: 5 G, PRN (AS NEEDED), IMMEDIATELY BEFORE PENETRATION
     Route: 067
     Dates: end: 20211128
  2. REMICADE [Concomitant]
     Active Substance: INFLIXIMAB
     Indication: Crohn^s disease
     Dosage: UNK, MONTHLY (AS DIRECTED), IV INFUSION
     Route: 042

REACTIONS (5)
  - Pregnancy [Recovered/Resolved]
  - Drug ineffective [Unknown]
  - SARS-CoV-2 test positive [Unknown]
  - Headache [Unknown]
  - Nasal congestion [Unknown]

NARRATIVE: CASE EVENT DATE: 20211128
